FAERS Safety Report 10540176 (Version 1)
Quarter: 2014Q4

REPORT INFORMATION
  Report Type: Spontaneous
  Country: US (occurrence: None)
  Receive Date: 20141023
  Receipt Date: 20141023
  Transmission Date: 20150529
  Serious: Yes (Hospitalization)
  Sender: FDA-Public Use
  Company Number: None

PATIENT
  Age: 89 Year
  Sex: Male
  Weight: 84.5 kg

DRUGS (1)
  1. CEFTRIAXONE. [Suspect]
     Active Substance: CEFTRIAXONE
     Dates: start: 20141009, end: 20141009

REACTIONS (5)
  - Decreased appetite [None]
  - Malaise [None]
  - Pain in extremity [None]
  - Anaemia [None]
  - Haematuria [None]

NARRATIVE: CASE EVENT DATE: 20141019
